FAERS Safety Report 9401108 (Version 1)
Quarter: 2013Q3

REPORT INFORMATION
  Report Type: Report from Study
  Country: US (occurrence: US)
  Receive Date: 20130715
  Receipt Date: 20130715
  Transmission Date: 20140515
  Serious: Yes (Hospitalization)
  Sender: FDA-Public Use
  Company Number: US-ACTELION-A-US2013-85709

PATIENT
  Age: 57 Year
  Sex: Female

DRUGS (2)
  1. TRACLEER [Suspect]
     Indication: PULMONARY ARTERIAL HYPERTENSION
     Dosage: UNK
     Route: 048
  2. COUMADIN [Concomitant]

REACTIONS (9)
  - Cerebrovascular accident [Unknown]
  - Thrombosis [Unknown]
  - Syncope [Unknown]
  - Cough [Unknown]
  - Dizziness [Unknown]
  - Middle insomnia [Unknown]
  - Dyspnoea [Unknown]
  - Fatigue [Unknown]
  - Oedema [Unknown]
